FAERS Safety Report 4960305-2 (Version None)
Quarter: 2006Q1

REPORT INFORMATION
  Report Type: 
  Country: None (occurrence: None)
  Receive Date: 20060328
  Receipt Date: 20060310
  Transmission Date: 20060701
  Serious: Yes (Other)
  Sender: FDA-Public Use
  Company Number: DSA_27902_2006

PATIENT
  Age: 71 Year
  Sex: Male

DRUGS (3)
  1. TEMESTA [Suspect]
     Indication: INSOMNIA
     Dosage: DF Q DAY PO
     Route: 048
  2. TEMESTA [Suspect]
     Indication: INSOMNIA
     Dosage: 1 TAB Q DAY PO
     Route: 048
     Dates: start: 19820101
  3. LORAZEPAM [Suspect]
     Indication: INSOMNIA
     Dosage: DF Q DAY PO
     Route: 048

REACTIONS (3)
  - ARRHYTHMIA [None]
  - DRUG WITHDRAWAL SYNDROME [None]
  - SLEEP APNOEA SYNDROME [None]
